FAERS Safety Report 5614207-9 (Version None)
Quarter: 2008Q1

REPORT INFORMATION
  Report Type: 
  Country: None (occurrence: None)
  Receive Date: 20080205
  Receipt Date: 20080131
  Transmission Date: 20080703
  Serious: Yes (Hospitalization)
  Sender: FDA-Public Use
  Company Number: US-PFIZER INC-2005167633

PATIENT
  Sex: Female
  Weight: 53.2 kg

DRUGS (2)
  1. SUTENT [Suspect]
     Indication: GASTROINTESTINAL STROMAL TUMOUR
     Route: 048
     Dates: start: 20050831, end: 20051213
  2. SUTENT [Suspect]
     Route: 048
     Dates: start: 20060120, end: 20060318

REACTIONS (1)
  - HYPOAESTHESIA [None]
